FAERS Safety Report 7852423-6 (Version None)
Quarter: 2011Q3

REPORT INFORMATION
  Report Type: 
  Country: None (occurrence: None)
  Receive Date: 20110912
  Receipt Date: 20110420
  Transmission Date: 20111222
  Serious: No
  Sender: FDA-Public Use
  Company Number: TH-2011-00100

PATIENT
  Age: 62 Year
  Sex: Female
  Weight: 86 kg

DRUGS (5)
  1. NORVIR [Concomitant]
  2. UNSPECIFIED CHOLESTEROL MEDICATION [Concomitant]
  3. GLUCOPHAGE [Concomitant]
  4. TRUVADA [EMTRICITABINE AND TENOFOVIR] [EMTRICITABINE, TENOFOVIR DISOPR [Concomitant]
  5. EGRIFTA [Suspect]
     Indication: LIPODYSTROPHY ACQUIRED
     Dosage: 1 IN 1 D
     Dates: start: 20110407

REACTIONS (1)
  - GLYCOSYLATED HAEMOGLOBIN INCREASED [None]
